FAERS Safety Report 10444270 (Version 1)
Quarter: 2014Q3

REPORT INFORMATION
  Report Type: Spontaneous
  Country: IN (occurrence: None)
  Receive Date: 20140908
  Receipt Date: 20140908
  Transmission Date: 20150326
  Serious: Yes (Other)
  Sender: FDA-Public Use
  Company Number: 2014JUB00116

PATIENT
  Age: 33 Year
  Sex: Male

DRUGS (1)
  1. METHYLPREDNISOLONE (METHYLPREDNISOLONE) [Suspect]
     Active Substance: METHYLPREDNISOLONE
     Route: 042

REACTIONS (1)
  - Sinus bradycardia [None]
